FAERS Safety Report 11795172 (Version 1)
Quarter: 2015Q4

REPORT INFORMATION
  Report Type: Report from Study
  Country: US (occurrence: US)
  Receive Date: 20151202
  Receipt Date: 20151202
  Transmission Date: 20160305
  Serious: Yes (Other)
  Sender: FDA-Public Use
  Company Number: US-BAXALTA-2015BLT002915

PATIENT
  Age: 8 Year
  Sex: Male

DRUGS (3)
  1. RIXUBIS [Suspect]
     Active Substance: COAGULATION FACTOR IX RECOMBINANT HUMAN
     Indication: HAEMORRHAGE
  2. RIXUBIS [Suspect]
     Active Substance: COAGULATION FACTOR IX RECOMBINANT HUMAN
     Indication: PROPHYLAXIS
     Dosage: UNK
     Route: 042
  3. RIXUBIS [Suspect]
     Active Substance: COAGULATION FACTOR IX RECOMBINANT HUMAN
     Indication: FACTOR IX DEFICIENCY

REACTIONS (6)
  - Soft tissue haemorrhage [Unknown]
  - Pain [Unknown]
  - Gastrointestinal haemorrhage [Unknown]
  - Impaired quality of life [Unknown]
  - Activities of daily living impaired [Unknown]
  - Haemarthrosis [Unknown]
